FAERS Safety Report 23319881 (Version 2)
Quarter: 2024Q1

REPORT INFORMATION
  Report Type: Spontaneous
  Country: US (occurrence: US)
  Receive Date: 20231220
  Receipt Date: 20240105
  Transmission Date: 20240410
  Serious: Yes (Other)
  Sender: FDA-Public Use
  Company Number: US-SA-SAC20231215000037

PATIENT
  Age: 44 Year
  Sex: Male

DRUGS (6)
  1. FABRAZYME [Suspect]
     Active Substance: AGALSIDASE BETA
     Indication: Fabry^s disease
     Dosage: 105 MG, QOW
     Route: 042
     Dates: start: 202305, end: 2023
  2. FABRAZYME [Suspect]
     Active Substance: AGALSIDASE BETA
     Dosage: 105 MG, QOW
     Route: 042
     Dates: start: 2023
  3. SOLU-CORTEF [Concomitant]
     Active Substance: HYDROCORTISONE SODIUM SUCCINATE
     Indication: Premedication
     Dosage: UNK
  4. TYLENOL [Concomitant]
     Active Substance: ACETAMINOPHEN
     Indication: Premedication
     Dosage: 650 MG
  5. TACROLIMUS [Concomitant]
     Active Substance: TACROLIMUS
  6. MYCOPHENOLIC ACID [Concomitant]
     Active Substance: MYCOPHENOLIC ACID

REACTIONS (3)
  - Renal transplant [Unknown]
  - Infusion related reaction [Recovered/Resolved]
  - Vomiting [Unknown]

NARRATIVE: CASE EVENT DATE: 20230101
